FAERS Safety Report 4994075-9 (Version None)
Quarter: 2006Q2

REPORT INFORMATION
  Report Type: 
  Country: None (occurrence: None)
  Receive Date: 20060503
  Receipt Date: 20060419
  Transmission Date: 20061013
  Serious: Yes (Hospitalization)
  Sender: FDA-Public Use
  Company Number: 2006JP000613

PATIENT
  Age: 45 Year
  Sex: Male
  Weight: 51 kg

DRUGS (16)
  1. FUNGUARD (MICAFUNGIN) INJECTION [Suspect]
     Indication: BRONCHOPULMONARY ASPERGILLOSIS
     Dosage: SEE IMAGE
     Route: 041
     Dates: start: 20051212, end: 20051225
  2. FUNGUARD (MICAFUNGIN) INJECTION [Suspect]
     Indication: BRONCHOPULMONARY ASPERGILLOSIS
     Dosage: SEE IMAGE
     Route: 041
     Dates: start: 20060106, end: 20060109
  3. FUNGUARD (MICAFUNGIN) INJECTION [Suspect]
     Indication: BRONCHOPULMONARY ASPERGILLOSIS
     Dosage: SEE IMAGE
     Route: 041
     Dates: start: 20060110, end: 20060112
  4. CEFAMEZIN (CEFAZOLIN) INJECTION [Suspect]
  5. UNIPHYL TABLET [Concomitant]
  6. MUCODYNE (CARBOCISTEINE) TABLET [Concomitant]
  7. MUCOSOLVAN (AMBROXOL HYDROCHLORIDE) TABLET [Concomitant]
  8. VITAMEDIN CAPSULE (BENFOTIAMINE) CAPSULE [Concomitant]
  9. GASTER D TABLET [Concomitant]
  10. CRAVIT (LEVOFLOXACIN) TABLET [Concomitant]
  11. FOSMICIN S (FOSFOMYCIN SODIUM) INJECTION [Concomitant]
  12. PREDNISOLONE [Concomitant]
  13. ITRIZOLE (ITRACONAZOLE) CAPSULE [Concomitant]
  14. PARIET (RABEPRAZOLE SODIUM) TABLET [Concomitant]
  15. TIENAM (IMIPENEM, CILASTATIN SODIUM) INJECTION [Concomitant]
  16. TAMIFLU (OSELTAMIVIR PHOSPHATE) CAPSULE [Concomitant]

REACTIONS (4)
  - HYPERTHERMIA [None]
  - LUNG INFECTION PSEUDOMONAL [None]
  - PNEUMONIA [None]
  - PULMONARY EOSINOPHILIA [None]
